FAERS Safety Report 8435521 (Version 7)
Quarter: 2014Q1

REPORT INFORMATION
  Report Type: Report from Study
  Country: US (occurrence: US)
  Receive Date: 20120301
  Receipt Date: 20140123
  Transmission Date: 20141002
  Serious: Yes (Hospitalization, Other)
  Sender: FDA-Public Use
  Company Number: US-ALEXION-A201200347

PATIENT
  Age: 43 Year
  Sex: Female
  Weight: 72.5 kg

DRUGS (22)
  1. SOLIRIS [Suspect]
     Indication: PAROXYSMAL NOCTURNAL HAEMOGLOBINURIA
     Dosage: 900 MG, QW
     Route: 042
     Dates: start: 20080519
  2. SOLIRIS [Suspect]
     Dosage: 600 MG, Q2W
     Route: 042
     Dates: start: 20081113
  3. SOLIRIS [Suspect]
     Dosage: 900 MG, Q2W
     Route: 042
     Dates: start: 20090325
  4. LOVENOX [Concomitant]
     Indication: DEEP VEIN THROMBOSIS
     Dosage: 100 MG, QD
     Route: 058
  5. LOVENOX [Concomitant]
     Dosage: 80 MG, BID
     Route: 058
  6. ALBUTEROL [Concomitant]
     Indication: ASTHMA
     Dosage: UNK
     Route: 055
  7. ADVAIR [Concomitant]
     Indication: ASTHMA
     Dosage: UNK
     Route: 055
  8. BENADRYL [Concomitant]
     Dosage: UNK
     Route: 048
  9. DILAUDID [Concomitant]
     Indication: PAIN
     Dosage: 4 MG, Q 4 HRS PRN
     Route: 048
  10. FOLIC ACID [Concomitant]
     Indication: FOLATE DEFICIENCY
     Dosage: UNK
     Route: 048
  11. COLACE [Concomitant]
     Dosage: UNK
  12. PAXIL [Concomitant]
     Dosage: UNK
     Route: 048
  13. RESTORIL [Concomitant]
     Indication: SLEEP DISORDER
     Dosage: UNK
     Route: 048
  14. SPIRIVA [Concomitant]
     Indication: ASTHMA
     Dosage: UNK
     Route: 055
  15. ASPIRIN [Concomitant]
     Indication: CORONARY ARTERY DISEASE
     Dosage: UNK
     Route: 048
  16. MULTIVITAMIN [Concomitant]
     Dosage: UNK
     Route: 048
  17. PHENERGAN [Concomitant]
     Indication: NAUSEA
     Dosage: UNK
     Route: 030
  18. VANCOMYCIN HCL [Concomitant]
     Dosage: UNK
     Route: 048
  19. ARANESP [Concomitant]
     Indication: ANAEMIA
     Dosage: 200 MG, Q 2 WEEKS
     Route: 060
  20. DESFERAL [Concomitant]
     Indication: IRON OVERLOAD
     Dosage: UNK
     Route: 048
  21. SYMBICORT [Concomitant]
     Indication: ASTHMA
     Dosage: 80-4.5 MCG, UNK
  22. TRAMADOL [Concomitant]
     Indication: PAIN
     Dosage: 50 MG, TID
     Route: 060

REACTIONS (10)
  - Rhabdomyolysis [Recovered/Resolved]
  - Disease progression [Recovered/Resolved]
  - Coombs negative haemolytic anaemia [Unknown]
  - Device related infection [Recovered/Resolved]
  - Bacteraemia [Recovered/Resolved]
  - Musculoskeletal pain [Not Recovered/Not Resolved]
  - Pneumonia [Recovered/Resolved]
  - Serum ferritin increased [Not Recovered/Not Resolved]
  - Contusion [Not Recovered/Not Resolved]
  - Insomnia [Not Recovered/Not Resolved]
